FAERS Safety Report 25516742 (Version 1)
Quarter: 2025Q3

REPORT INFORMATION
  Report Type: Spontaneous
  Country: US (occurrence: US)
  Receive Date: 20250704
  Receipt Date: 20250704
  Transmission Date: 20251021
  Serious: No
  Sender: RADIUS PHARM
  Company Number: US-RADIUS HEALTH INC.-US-RADIUS-25045955

PATIENT
  Sex: Female

DRUGS (1)
  1. TYMLOS [Suspect]
     Active Substance: ABALOPARATIDE
     Indication: Osteoporosis
     Dosage: 80 MCG DAILY
     Route: 058
     Dates: start: 202502

REACTIONS (6)
  - Rhinovirus infection [Unknown]
  - Influenza [Unknown]
  - Swelling face [Unknown]
  - Bone pain [Unknown]
  - Headache [Unknown]
  - Fatigue [Unknown]
